FAERS Safety Report 14275477 (Version 1)
Quarter: 2017Q4

REPORT INFORMATION
  Report Type: Spontaneous
  Country: FR (occurrence: FR)
  Receive Date: 20171212
  Receipt Date: 20171212
  Transmission Date: 20180321
  Serious: Yes (Hospitalization)
  Sender: FDA-Public Use
  Company Number: FR-MERCK KGAA-2037027

PATIENT
  Age: 46 Year
  Sex: Female

DRUGS (2)
  1. NOVOTHYROX [Suspect]
     Active Substance: LEVOTHYROXINE SODIUM
     Indication: BASEDOW^S DISEASE
  2. THYROZOL [Concomitant]
     Active Substance: METHIMAZOLE

REACTIONS (10)
  - Vertigo [None]
  - Erythema nodosum [None]
  - Tachycardia [None]
  - Headache [None]
  - Pain in extremity [None]
  - Muscle spasms [None]
  - Dyspnoea [None]
  - Fatigue [None]
  - Hypothyroidism [None]
  - Loss of personal independence in daily activities [None]

NARRATIVE: CASE EVENT DATE: 201705
